FAERS Safety Report 7284184-6 (Version None)
Quarter: 2011Q1

REPORT INFORMATION
  Report Type: 
  Country: None (occurrence: None)
  Receive Date: 20110209
  Receipt Date: 20110201
  Transmission Date: 20110831
  Serious: Yes (Life-Threatening)
  Sender: FDA-Public Use
  Company Number: US-GENENTECH-303462

PATIENT
  Sex: Female
  Weight: 60.317 kg

DRUGS (3)
  1. ADVAIR [Concomitant]
     Indication: PRODUCT USED FOR UNKNOWN INDICATION
     Dosage: UNK
  2. XOPENEX [Concomitant]
     Indication: PRODUCT USED FOR UNKNOWN INDICATION
     Dosage: 45 MG, UNK
  3. XOLAIR [Suspect]
     Indication: ASTHMA
     Dosage: 300 MG, X1
     Route: 058
     Dates: start: 20100617

REACTIONS (2)
  - CHEST DISCOMFORT [None]
  - ANGIOEDEMA [None]
